FAERS Safety Report 18336343 (Version 1)
Quarter: 2020Q4

REPORT INFORMATION
  Report Type: Spontaneous
  Country: IN (occurrence: IN)
  Receive Date: 20201001
  Receipt Date: 20201001
  Transmission Date: 20210113
  Serious: Yes (Other)
  Sender: FDA-Public Use
  Company Number: IN-FRESENIUS KABI-FK202010161

PATIENT
  Age: 46 Year
  Sex: Male
  Weight: 64 kg

DRUGS (7)
  1. MYCOPHENOLIC ACID. [Suspect]
     Active Substance: MYCOPHENOLIC ACID
     Indication: IMMUNOSUPPRESSANT DRUG THERAPY
     Route: 048
  2. DEXAMETHASONE INJECTION (MANUFACTURER UNKNOWN) [Suspect]
     Active Substance: DEXAMETHASONE
     Indication: PRODUCT USED FOR UNKNOWN INDICATION
     Dosage: UNKNOWN
     Route: 042
  3. RITUXIMAB. [Suspect]
     Active Substance: RITUXIMAB
     Indication: IMMUNOSUPPRESSANT DRUG THERAPY
     Route: 042
  4. PREDNISOLONE. [Suspect]
     Active Substance: PREDNISOLONE
     Indication: IMMUNOSUPPRESSANT DRUG THERAPY
     Route: 048
  5. ANTITHYMOCYTE IMMUNOGLOBULIN (RABBIT) [Suspect]
     Active Substance: LAPINE T-LYMPHOCYTE IMMUNE GLOBULIN
     Indication: CHEMOTHERAPY
     Dosage: 3 MG/KG BODY WEIGHT IN 2 DIVIDED DOSES
     Route: 065
  6. TACROLIMUS. [Suspect]
     Active Substance: TACROLIMUS
     Indication: IMMUNOSUPPRESSANT DRUG THERAPY
     Route: 048
  7. METHYLPREDNISOLONE (MANUFACTURER UNKNOWN) [Suspect]
     Active Substance: METHYLPREDNISOLONE
     Indication: CHEMOTHERAPY
     Route: 042

REACTIONS (1)
  - Phaeohyphomycotic brain abscess [Recovered/Resolved]
